FAERS Safety Report 23856773 (Version 1)
Quarter: 2024Q2

REPORT INFORMATION
  Report Type: Spontaneous
  Country: KR (occurrence: KR)
  Receive Date: 20240515
  Receipt Date: 20240515
  Transmission Date: 20240716
  Serious: Yes (Other)
  Sender: FDA-Public Use
  Company Number: KR-SUN PHARMACEUTICAL INDUSTRIES LTD-2024RR-446331

PATIENT
  Age: 56 Year
  Sex: Male

DRUGS (11)
  1. IRINOTECAN [Suspect]
     Active Substance: IRINOTECAN
     Indication: Colorectal cancer
     Dosage: FOLFIRI - FIRST LINE CHEMOTHERAPY
     Route: 065
  2. IRINOTECAN [Suspect]
     Active Substance: IRINOTECAN
     Dosage: FOURTH LINE CHEMOTHERAPY (12 CYCLES)
     Route: 065
     Dates: start: 201809, end: 201903
  3. LEUCOVORIN CALCIUM [Suspect]
     Active Substance: LEUCOVORIN CALCIUM
     Indication: Colorectal cancer
     Dosage: FOLFIRI - FIRST LINE CHEMOTHERAPY
     Route: 065
  4. LEUCOVORIN CALCIUM [Suspect]
     Active Substance: LEUCOVORIN CALCIUM
     Dosage: 12 CYCLES OF BEVACIZUMAB - FOLFOX4
     Route: 065
     Dates: start: 201610, end: 201705
  5. OXALIPLATIN [Suspect]
     Active Substance: OXALIPLATIN
     Indication: Metastases to liver
     Dosage: 12 CYCLES OF BEVACIZUMAB - FOLFOX4
     Route: 065
     Dates: start: 201610, end: 201705
  6. CAPECITABINE [Suspect]
     Active Substance: CAPECITABINE
     Indication: Chemotherapy
     Dosage: THIRD-LINE CHEMOTHERAPY (9 CYCLES)
     Route: 065
     Dates: start: 201709, end: 201803
  7. FLUOROURACIL [Suspect]
     Active Substance: FLUOROURACIL
     Indication: Colorectal cancer
     Dosage: FOLFIRI - FIRST LINE CHEMOTHERAPY
     Route: 065
  8. FLUOROURACIL [Suspect]
     Active Substance: FLUOROURACIL
     Dosage: 12 CYCLES OF BEVACIZUMAB - FOLFOX4
     Route: 065
     Dates: start: 201610, end: 201705
  9. BEVACIZUMAB [Suspect]
     Active Substance: BEVACIZUMAB
     Indication: Colorectal cancer
     Dosage: FIRST LINE CHEMOTHERAPY
     Route: 065
  10. BEVACIZUMAB [Suspect]
     Active Substance: BEVACIZUMAB
     Dosage: 12 CYCLES OF BEVACIZUMAB - FOLFOX4
     Dates: start: 201610, end: 201705
  11. CETUXIMAB [Suspect]
     Active Substance: CETUXIMAB
     Indication: Chemotherapy
     Dosage: FOURTH LINE CHEMOTHERAPY (12 CYCLES)
     Dates: start: 201809, end: 201903

REACTIONS (3)
  - Therapeutic product effect incomplete [Unknown]
  - Disease recurrence [Unknown]
  - Disease progression [Unknown]
